FAERS Safety Report 15567828 (Version 1)
Quarter: 2018Q4

REPORT INFORMATION
  Report Type: Report from Study
  Country: None (occurrence: CA)
  Receive Date: 20181030
  Receipt Date: 20181030
  Transmission Date: 20190205
  Serious: Yes (Other)
  Sender: FDA-Public Use
  Company Number: CA-ABBVIE-18S-028-2536593-00

PATIENT
  Sex: Male
  Weight: 90.8 kg

DRUGS (1)
  1. LUPRON DEPOT [Suspect]
     Active Substance: LEUPROLIDE ACETATE
     Indication: PROSTATE CANCER
     Route: 030

REACTIONS (3)
  - Device related infection [Unknown]
  - Transurethral prostatectomy [Unknown]
  - Pain [Unknown]

NARRATIVE: CASE EVENT DATE: 2018
